FAERS Safety Report 13421638 (Version 1)
Quarter: 2017Q2

REPORT INFORMATION
  Report Type: Spontaneous
  Country: US (occurrence: US)
  Receive Date: 20170410
  Receipt Date: 20170410
  Transmission Date: 20170830
  Serious: No
  Sender: FDA-Public Use
  Company Number: US-ORION CORPORATION ORION PHARMA-17_00002137

PATIENT
  Age: 30 Year
  Sex: Female

DRUGS (2)
  1. SPIRONOLACTONE (TRADE NAME UNKNOWN) [Suspect]
     Active Substance: SPIRONOLACTONE
     Route: 065
  2. METFORMIN [Suspect]
     Active Substance: METFORMIN HYDROCHLORIDE
     Route: 065

REACTIONS (5)
  - Dyslipidaemia [Unknown]
  - Glucose tolerance impaired [Unknown]
  - Hepatic enzyme increased [Unknown]
  - Hyperinsulinaemia [Unknown]
  - Hyperandrogenism [Recovered/Resolved]
